FAERS Safety Report 8791957 (Version 1)
Quarter: 2012Q4

REPORT INFORMATION
  Report Type: 
  Country: US (occurrence: US)
  Receive Date: 20120918
  Receipt Date: 20120918
  Transmission Date: 20130627
  Serious: No
  Sender: FDA-Public Use
  Company Number: US-MUTUAL PHARMACEUTICAL COMPANY, INC.-SPHZ20120001

PATIENT
  Sex: Female
  Weight: 69.01 kg

DRUGS (13)
  1. SPIRONOLACTONE AND HYDROCHLOROTHIAZIDE [Suspect]
     Indication: ANKLE SWELLING
     Route: 048
     Dates: start: 201205
  2. OMEPRAZOLE [Suspect]
     Indication: DRUG USE FOR UNKNOWN INDICATION
     Route: 065
  3. OMEGA-3 [Suspect]
     Indication: DRUG USE FOR UNKNOWN INDICATION
     Route: 065
  4. SUPER B COMPLEX [Suspect]
     Indication: DRUG USE FOR UNKNOWN INDICATION
     Route: 065
  5. BIOTIN [Suspect]
     Indication: DRUG USE FOR UNKNOWN INDICATION
     Route: 065
  6. CALTRATE WITH VITAMIN D [Suspect]
     Indication: DRUG USE FOR UNKNOWN INDICATION
     Route: 065
  7. COLON HEALTH PROBIOTIC [Suspect]
     Indication: DRUG USE FOR UNKNOWN INDICATION
     Route: 065
  8. COLACE [Suspect]
     Indication: DRUG USE FOR UNKNOWN INDICATION
     Route: 065
  9. METOPROLOL [Suspect]
     Indication: BLOOD PRESSURE HIGH
     Route: 065
  10. PRAVASTATIN SODIUM [Suspect]
     Indication: HIGH CHOLESTEROL
     Route: 065
  11. BAYER ASPIRIN [Suspect]
     Indication: DRUG USE FOR UNKNOWN INDICATION
     Route: 065
  12. METAMUCIL [Suspect]
     Indication: DRUG USE FOR UNKNOWN INDICATION
     Route: 065
  13. CENTRUM SILVER [Suspect]
     Indication: DRUG USE FOR UNKNOWN INDICATION
     Route: 065

REACTIONS (2)
  - Loss of consciousness [Recovered/Resolved]
  - Drug interaction [None]
